FAERS Safety Report 10196412 (Version 2)
Quarter: 2014Q3

REPORT INFORMATION
  Report Type: Spontaneous
  Country: CA (occurrence: CA)
  Receive Date: 20140527
  Receipt Date: 20140804
  Transmission Date: 20150326
  Serious: Yes (Hospitalization, Other)
  Sender: FDA-Public Use
  Company Number: CA-NOVOPROD-410982

PATIENT
  Age: 59 Year
  Sex: Female
  Weight: 101.8 kg

DRUGS (16)
  1. NOVOLIN [Suspect]
     Active Substance: INSULIN HUMAN
     Indication: TYPE 2 DIABETES MELLITUS
     Dosage: 50 U
     Route: 065
     Dates: start: 20130731
  2. VALACYCLOVIR [Concomitant]
     Active Substance: VALACYCLOVIR HYDROCHLORIDE
     Dosage: UNK
     Dates: start: 2012
  3. ASA [Concomitant]
     Active Substance: ASPIRIN
     Dosage: 81 MG
     Dates: start: 2008
  4. METFORMIN [Concomitant]
     Active Substance: METFORMIN HYDROCHLORIDE
     Dosage: 1000 MG, BID
     Dates: start: 2008
  5. LANTUS [Concomitant]
     Active Substance: INSULIN GLARGINE
     Dosage: 55 U (TAKEN AT BED TIME)
  6. VALSARTAN. [Concomitant]
     Active Substance: VALSARTAN
     Dosage: 80 MG, QD
  7. NOVOLIN [Concomitant]
     Active Substance: INSULIN HUMAN
     Indication: TYPE 2 DIABETES MELLITUS
     Dosage: 22 U
     Route: 065
  8. NOVOLIN [Suspect]
     Active Substance: INSULIN HUMAN
     Dosage: UNK
     Route: 065
     Dates: end: 20140514
  9. CLOPIDOGREL [Concomitant]
     Active Substance: CLOPIDOGREL BISULFATE
     Dosage: UNK
     Dates: start: 201405
  10. PANTOLOC                           /01263204/ [Concomitant]
     Active Substance: PANTOPRAZOLE SODIUM
     Dosage: UNK
     Dates: start: 2014
  11. ROSUVASTATIN [Concomitant]
     Active Substance: ROSUVASTATIN
     Dosage: 20 MG, QD
  12. METOPROLOL [Concomitant]
     Active Substance: METOPROLOL
     Dosage: 25 MG, BID
     Dates: start: 2007
  13. CRESTOR [Concomitant]
     Active Substance: ROSUVASTATIN CALCIUM
     Dosage: 20 MG, QD
     Dates: start: 2008
  14. APIDRA [Concomitant]
     Active Substance: INSULIN GLULISINE
     Dosage: 17 U (WITH MEAL)
  15. NITROSPRAY [Concomitant]
     Dosage: PRN
     Dates: start: 2008
  16. DIOVAN [Concomitant]
     Active Substance: VALSARTAN
     Dosage: 80 MG, QD
     Dates: start: 2012

REACTIONS (2)
  - Drug hypersensitivity [Recovered/Resolved]
  - Acute myocardial infarction [Recovered/Resolved]

NARRATIVE: CASE EVENT DATE: 20140507
